FAERS Safety Report 21664742 (Version 1)
Quarter: 2022Q4

REPORT INFORMATION
  Report Type: Spontaneous
  Country: FR (occurrence: FR)
  Receive Date: 20221130
  Receipt Date: 20221130
  Transmission Date: 20230112
  Serious: Yes (Hospitalization)
  Sender: FDA-Public Use
  Company Number: None

PATIENT
  Age: 63 Year
  Sex: Male
  Weight: 84.5 kg

DRUGS (3)
  1. DEXAMETHASONE [Suspect]
     Active Substance: DEXAMETHASONE
     Indication: Primary amyloidosis
     Dosage: 40 MILLIGRAM
     Route: 042
     Dates: start: 20220107, end: 20220107
  2. REVLIMID [Suspect]
     Active Substance: LENALIDOMIDE
     Indication: Primary amyloidosis
     Dosage: 10 MILLIGRAM, QD
     Route: 048
     Dates: start: 20211224, end: 20220114
  3. DARZALEX [Suspect]
     Active Substance: DARATUMUMAB
     Indication: Primary amyloidosis
     Dosage: 1 DOSAGE FORM
     Route: 042
     Dates: start: 20220107, end: 20220107

REACTIONS (2)
  - Neutropenia [Recovered/Resolved]
  - Anaemia [Recovered/Resolved]

NARRATIVE: CASE EVENT DATE: 20220110
